FAERS Safety Report 8949141 (Version 1)
Quarter: 2012Q4

REPORT INFORMATION
  Report Type: 
  Country: TR (occurrence: TR)
  Receive Date: 20121206
  Receipt Date: 20121206
  Transmission Date: 20130627
  Serious: Yes (Hospitalization, Other)
  Sender: FDA-Public Use
  Company Number: TR-ABBOTT-12P-161-1013756-00

PATIENT
  Sex: Female
  Weight: 39 kg

DRUGS (3)
  1. HUMIRA [Suspect]
     Indication: ANKYLOSING SPONDYLITIS
     Route: 058
     Dates: start: 20110923
  2. VERMIDON (PARACETAMOLE) [Concomitant]
     Indication: PRODUCT USED FOR UNKNOWN INDICATION
  3. FOLBIOL [Concomitant]
     Indication: PRODUCT USED FOR UNKNOWN INDICATION
     Dosage: 5 mg X 2/week
     Route: 048

REACTIONS (4)
  - Cartilage atrophy [Unknown]
  - Chondropathy [Unknown]
  - Gait disturbance [Unknown]
  - Limb deformity [Unknown]
